FAERS Safety Report 21023084 (Version 1)
Quarter: 2022Q2

REPORT INFORMATION
  Report Type: Spontaneous
  Country: US (occurrence: None)
  Receive Date: 20220629
  Receipt Date: 20220629
  Transmission Date: 20220721
  Serious: Yes (Hospitalization)
  Sender: FDA-Public Use
  Company Number: None

PATIENT
  Age: 79 Year
  Sex: Male
  Weight: 85 kg

DRUGS (2)
  1. APIXABAN [Suspect]
     Active Substance: APIXABAN
     Dosage: FREQUENCY : TWICE A DAY;?
     Route: 048
  2. APIXABAN [Suspect]
     Active Substance: APIXABAN

REACTIONS (3)
  - Anaemia [None]
  - Gastric haemorrhage [None]
  - Duodenal ulcer [None]

NARRATIVE: CASE EVENT DATE: 20220525
